FAERS Safety Report 8462564 (Version 2)
Quarter: 2013Q1

REPORT INFORMATION
  Report Type: Spontaneous
  Country: JP (occurrence: JP)
  Receive Date: 20120316
  Receipt Date: 20130121
  Transmission Date: 20140127
  Serious: Yes (Death, Other)
  Sender: FDA-Public Use
  Company Number: JP-RANBAXY-2012RR-53716

PATIENT
  Age: 69 Year
  Sex: 0

DRUGS (6)
  1. FLUCONAZOLE [Suspect]
     Indication: ANTIFUNGAL TREATMENT
     Dosage: UNK
     Route: 048
  2. VINCRISTINE [Suspect]
     Indication: CHEMOTHERAPY
     Dosage: UNK
     Route: 065
  3. ADRIAMYCIN [Concomitant]
     Indication: CHEMOTHERAPY
     Dosage: UNK
     Route: 065
  4. CYCLOPHOSPHAMIDE [Concomitant]
     Indication: CHEMOTHERAPY
     Dosage: UNK
     Route: 065
  5. ETOPOSIDE [Concomitant]
     Indication: CHEMOTHERAPY
     Dosage: UNK
     Route: 065
  6. PREDNISOLONE [Concomitant]
     Indication: CHEMOTHERAPY
     Dosage: UNK
     Route: 065

REACTIONS (2)
  - Ileus paralytic [Unknown]
  - Drug interaction [Unknown]
